FAERS Safety Report 4583497-6 (Version None)
Quarter: 2005Q1

REPORT INFORMATION
  Report Type: 
  Country: None (occurrence: None)
  Receive Date: 20050211
  Receipt Date: 20050201
  Transmission Date: 20050727
  Serious: Yes (Hospitalization)
  Sender: FDA-Public Use
  Company Number: 2005024338

PATIENT
  Age: 82 Year
  Sex: Male

DRUGS (5)
  1. LIPITOR [Suspect]
     Indication: CARDIAC DISORDER
     Dosage: 20 MG (1 IN 1 D), ORAL
     Route: 048
     Dates: end: 20041001
  2. ENALAPRIL MALEATE [Concomitant]
  3. METOPROLOL SUCCINATE [Concomitant]
  4. ASASANTIN (ACETYLSALICYCLIC ACID, DIPYRIDAMOLE) [Concomitant]
  5. OXAZEPAM [Concomitant]

REACTIONS (5)
  - CHROMATURIA [None]
  - DYSPEPSIA [None]
  - FEELING ABNORMAL [None]
  - HEPATITIS TOXIC [None]
  - NAUSEA [None]
